FAERS Safety Report 9968456 (Version 1)
Quarter: 2014Q1

REPORT INFORMATION
  Report Type: Report from Study
  Country: US (occurrence: US)
  Receive Date: 20140306
  Receipt Date: 20140306
  Transmission Date: 20141002
  Serious: No
  Sender: FDA-Public Use
  Company Number: US-ABBVIE-13P-163-1140468-00

PATIENT
  Age: 21 Year
  Sex: Female

DRUGS (3)
  1. HUMIRA [Suspect]
     Indication: CROHN^S DISEASE
     Dates: start: 20130812
  2. LOVENOX [Concomitant]
     Indication: THROMBOSIS
  3. MULTIVITAMINS [Concomitant]
     Dosage: DAILY

REACTIONS (4)
  - Drug prescribing error [Not Recovered/Not Resolved]
  - Muscle tightness [Not Recovered/Not Resolved]
  - Circumstance or information capable of leading to medication error [Not Recovered/Not Resolved]
  - Sleep disorder [Not Recovered/Not Resolved]
